FAERS Safety Report 21393660 (Version 1)
Quarter: 2022Q3

REPORT INFORMATION
  Report Type: Spontaneous
  Country: US (occurrence: None)
  Receive Date: 20220928
  Receipt Date: 20220928
  Transmission Date: 20221027
  Serious: Yes (Hospitalization)
  Sender: FDA-Public Use
  Company Number: None

PATIENT
  Age: 88 Year
  Sex: Male
  Weight: 65.0 kg

DRUGS (13)
  1. ENZALUTAMIDE [Suspect]
     Active Substance: ENZALUTAMIDE
     Indication: Prostate cancer
     Route: 048
     Dates: start: 20160906, end: 20160906
  2. DUTASTERIDE [Suspect]
     Active Substance: DUTASTERIDE
     Indication: Prostate cancer
     Route: 048
  3. PRAVASTATIN [Concomitant]
     Active Substance: PRAVASTATIN
  4. AMIODIPINE [Concomitant]
  5. FLUOROMETHOLONE [Concomitant]
     Active Substance: FLUOROMETHOLONE
  6. ASCORBIC ACID [Concomitant]
  7. POLYETHYLENE GLYCOL [Concomitant]
  8. TAMSULOSIN [Concomitant]
  9. DILIAZEM-LIDOCAINE [Concomitant]
  10. CYANCOBALAMIN [Concomitant]
  11. ZINC [Concomitant]
     Active Substance: ZINC
  12. VITAMIN D [Concomitant]
     Active Substance: VITAMIN D NOS
  13. ASCORBIC ACID [Concomitant]
     Active Substance: ASCORBIC ACID

REACTIONS (9)
  - Pollakiuria [None]
  - Asthenia [None]
  - Urinary incontinence [None]
  - Cough [None]
  - Decreased activity [None]
  - Malaise [None]
  - Leukocytosis [None]
  - Urine analysis abnormal [None]
  - Urinary tract infection [None]

NARRATIVE: CASE EVENT DATE: 20220927
